FAERS Safety Report 8072342-2 (Version None)
Quarter: 2011Q4

REPORT INFORMATION
  Report Type: 
  Country: None (occurrence: None)
  Receive Date: 20111222
  Receipt Date: 20111103
  Transmission Date: 20120403
  Serious: Yes (Hospitalization)
  Sender: FDA-Public Use
  Company Number: UTC-011507

PATIENT
  Age: 35 Year
  Sex: Male
  Weight: 68.63 kg

DRUGS (4)
  1. TRACLEER [Concomitant]
  2. ADCIRCA [Concomitant]
  3. TYVASO [Suspect]
     Indication: COR PULMONALE CHRONIC
     Dosage: 18-54 MICROGRAMS (4 IN 1 D),INHALATION
     Route: 055
     Dates: start: 20100723
  4. REVATIO [Concomitant]

REACTIONS (3)
  - LUNG TRANSPLANT [None]
  - LUNG DISORDER [None]
  - PULMONARY HYPERTENSION [None]
